FAERS Safety Report 6584683-6 (Version None)
Quarter: 2010Q1

REPORT INFORMATION
  Report Type: 
  Country: None (occurrence: None)
  Receive Date: 20100217
  Receipt Date: 20100204
  Transmission Date: 20100710
  Serious: Yes (Other)
  Sender: FDA-Public Use
  Company Number: PHEH2009US10038

PATIENT
  Age: 65 Year
  Sex: Female

DRUGS (3)
  1. RECLAST [Suspect]
     Indication: OSTEOPOROSIS
     Dosage: UNK
     Dates: start: 20081001
  2. CALCIUM [Concomitant]
     Indication: OSTEOPOROSIS
     Dosage: 3000 MG, UNK
     Dates: start: 20081001
  3. VITAMIN D [Concomitant]
     Indication: OSTEOPOROSIS
     Dosage: 3000 IU, UNK
     Dates: start: 20081001

REACTIONS (8)
  - ACTIVITIES OF DAILY LIVING IMPAIRED [None]
  - ASTHMA [None]
  - BLOOD CALCIUM ABNORMAL [None]
  - HAND DEFORMITY [None]
  - HYPERSENSITIVITY [None]
  - MUSCLE SPASMS [None]
  - POSTURE ABNORMAL [None]
  - PRURITUS [None]
